FAERS Safety Report 14631985 (Version 3)
Quarter: 2018Q1

REPORT INFORMATION
  Report Type: Spontaneous
  Country: US (occurrence: US)
  Receive Date: 20180313
  Receipt Date: 20180322
  Transmission Date: 20180509
  Serious: No
  Sender: FDA-Public Use
  Company Number: US-BIOGEN-2018BI00537173

PATIENT
  Sex: Female

DRUGS (2)
  1. TYSABRI [Suspect]
     Active Substance: NATALIZUMAB
     Dosage: INFUSED OVER 1 HOUR
     Route: 050
  2. TYSABRI [Suspect]
     Active Substance: NATALIZUMAB
     Indication: MULTIPLE SCLEROSIS
     Route: 065
     Dates: start: 20140910, end: 20170626

REACTIONS (9)
  - Feeling abnormal [Unknown]
  - Multiple sclerosis relapse [Unknown]
  - Pain [Unknown]
  - Multiple sclerosis [Not Recovered/Not Resolved]
  - Paraesthesia [Unknown]
  - Drug dose omission [Recovered/Resolved]
  - Insomnia [Unknown]
  - Cardiac disorder [Unknown]
  - Motor dysfunction [Unknown]
